FAERS Safety Report 4524007-9 (Version None)
Quarter: 2004Q4

REPORT INFORMATION
  Report Type: 
  Country: None (occurrence: None)
  Receive Date: 20041210
  Receipt Date: 20041130
  Transmission Date: 20050328
  Serious: Yes (Other)
  Sender: FDA-Public Use
  Company Number: DE-ABBOTT-04P-062-0281925-00

PATIENT
  Sex: Male
  Weight: 85 kg

DRUGS (2)
  1. AKINETON [Suspect]
     Indication: SUICIDE ATTEMPT
     Route: 048
     Dates: start: 20041129, end: 20041129
  2. MELPERONE [Suspect]
     Indication: SUICIDE ATTEMPT
     Dosage: MELPERONE 25
     Route: 048
     Dates: start: 20041129, end: 20041129

REACTIONS (3)
  - FATIGUE [None]
  - OVERDOSE [None]
  - SUICIDE ATTEMPT [None]
